FAERS Safety Report 16383264 (Version 1)
Quarter: 2019Q2

REPORT INFORMATION
  Report Type: Spontaneous
  Country: GB (occurrence: GB)
  Receive Date: 20190603
  Receipt Date: 20190603
  Transmission Date: 20190711
  Serious: Yes (Other)
  Sender: FDA-Public Use
  Company Number: GB-BAYER-2019-105902

PATIENT
  Age: 49 Year
  Sex: Male
  Weight: 67 kg

DRUGS (1)
  1. PRIMOVIST [Suspect]
     Active Substance: GADOXETATE DISODIUM
     Indication: NUCLEAR MAGNETIC RESONANCE IMAGING
     Dosage: 10 ML, UNK
     Route: 042
     Dates: start: 20190502, end: 20190502

REACTIONS (3)
  - Urticaria [Recovering/Resolving]
  - Pharyngeal paraesthesia [Unknown]
  - Dysphonia [Unknown]

NARRATIVE: CASE EVENT DATE: 20190502
